FAERS Safety Report 6330824-5 (Version None)
Quarter: 2009Q3

REPORT INFORMATION
  Report Type: 
  Country: None (occurrence: None)
  Receive Date: 20090827
  Receipt Date: 20090825
  Transmission Date: 20100115
  Serious: Yes (Death, Other)
  Sender: FDA-Public Use
  Company Number: PHHY2009GB35765

PATIENT
  Age: 62 Year
  Sex: Female

DRUGS (5)
  1. TEGRETOL [Suspect]
     Indication: EPILEPSY
     Dosage: 200 MG, BID
     Route: 048
     Dates: start: 20090311
  2. TEGRETOL [Suspect]
     Dosage: UNK
     Route: 048
     Dates: start: 20090312
  3. KEPPRA [Suspect]
     Indication: EPILEPSY
     Dosage: 250 MG, BID
     Route: 048
  4. TOPAMAX [Suspect]
     Indication: EPILEPSY
     Dosage: 200 MG, BID
     Route: 048
  5. VIMPAT [Suspect]
     Indication: PARTIAL SEIZURES
     Dosage: 100 MG, BID
     Route: 048
     Dates: start: 20090312

REACTIONS (5)
  - CHRONIC OBSTRUCTIVE PULMONARY DISEASE [None]
  - DEATH [None]
  - DYSPNOEA [None]
  - HYPONATRAEMIA [None]
  - WHEEZING [None]
